FAERS Safety Report 12434001 (Version 1)
Quarter: 2016Q2

REPORT INFORMATION
  Report Type: Spontaneous
  Country: CN (occurrence: CN)
  Receive Date: 20160603
  Receipt Date: 20160603
  Transmission Date: 20160815
  Serious: Yes (Other)
  Sender: FDA-Public Use
  Company Number: CN-MYLANLABS-2016M1022836

PATIENT

DRUGS (2)
  1. PACLITAXEL. [Suspect]
     Active Substance: PACLITAXEL
     Indication: METASTASES TO PERITONEUM
     Dosage: 100 MG/M2
     Route: 033
  2. LOBAPLATIN [Suspect]
     Active Substance: LOBAPLATIN
     Indication: METASTASES TO PERITONEUM
     Dosage: 50 MG/M2
     Route: 033

REACTIONS (3)
  - Neoplasm recurrence [Unknown]
  - Abdominal mass [Unknown]
  - Intestinal obstruction [Unknown]
